FAERS Safety Report 23500250 (Version 2)
Quarter: 2024Q1

REPORT INFORMATION
  Report Type: Spontaneous
  Country: SE (occurrence: SE)
  Receive Date: 20240208
  Receipt Date: 20240302
  Transmission Date: 20240410
  Serious: Yes (Other)
  Sender: FDA-Public Use
  Company Number: None

PATIENT
  Age: 47 Year
  Sex: Female

DRUGS (1)
  1. METHOTREXATE [Suspect]
     Active Substance: METHOTREXATE
     Indication: Lichen planopilaris
     Dosage: STRENGTH: 2.5 MG 2.5MG, DOSAGE VARYING 5-7 TABLETS OF 2.5 MG 1 TIME PER WEEK IS STATED IN THE REPORT
     Dates: start: 202302, end: 202309

REACTIONS (1)
  - Anaemia [Recovered/Resolved]

NARRATIVE: CASE EVENT DATE: 20230601
